FAERS Safety Report 9263760 (Version 1)
Quarter: 2013Q2

REPORT INFORMATION
  Report Type: Spontaneous
  Country: US (occurrence: None)
  Receive Date: 20130429
  Receipt Date: 20130429
  Transmission Date: 20140414
  Serious: Yes (Hospitalization)
  Sender: FDA-Public Use
  Company Number: None

PATIENT
  Age: 56 Year
  Sex: Female
  Weight: 79.38 kg

DRUGS (1)
  1. METOCLOPRAMIDE [Suspect]
     Indication: DIABETIC GASTROPARESIS
     Dosage: ONE TABLET
     Route: 048
     Dates: start: 20000101, end: 20130424

REACTIONS (3)
  - Balance disorder [None]
  - Gait disturbance [None]
  - Incorrect drug administration duration [None]
